FAERS Safety Report 6134654-9 (Version None)
Quarter: 2009Q1

REPORT INFORMATION
  Report Type: 
  Country: None (occurrence: None)
  Receive Date: 20090327
  Receipt Date: 20090319
  Transmission Date: 20090719
  Serious: Yes (Hospitalization)
  Sender: FDA-Public Use
  Company Number: US-BIOGENIDEC-2009BI001449

PATIENT
  Age: 54 Year
  Sex: Female
  Weight: 81 kg

DRUGS (1)
  1. AVONEX [Suspect]
     Indication: MULTIPLE SCLEROSIS
     Route: 030
     Dates: start: 20050709

REACTIONS (6)
  - BLOOD POTASSIUM DECREASED [None]
  - CHOLANGITIS [None]
  - CHOLECYSTITIS CHRONIC [None]
  - JAUNDICE [None]
  - MENISCUS LESION [None]
  - SEPSIS [None]
